FAERS Safety Report 22084465 (Version 1)
Quarter: 2023Q1

REPORT INFORMATION
  Report Type: Report from Study
  Country: PL (occurrence: PL)
  Receive Date: 20230310
  Receipt Date: 20230310
  Transmission Date: 20230418
  Serious: Yes (Hospitalization, Other)
  Sender: FDA-Public Use
  Company Number: PL-TAKEDA-2023TUS023972

PATIENT
  Age: 12 Year
  Sex: Male

DRUGS (62)
  1. IDURSULFASE [Suspect]
     Active Substance: IDURSULFASE
     Indication: Mucopolysaccharidosis II
     Dosage: UNK UNK, 1/WEEK
     Route: 042
     Dates: start: 20091027
  2. IDURSULFASE [Suspect]
     Active Substance: IDURSULFASE
     Dosage: UNK UNK, 1/WEEK
     Route: 042
     Dates: start: 20100922, end: 20121018
  3. CETIRIZINE [Concomitant]
     Active Substance: CETIRIZINE HYDROCHLORIDE
     Indication: Urticaria
  4. PREDNISONE [Concomitant]
     Active Substance: PREDNISONE
     Indication: Infection
  5. SOYFEM [Concomitant]
     Indication: Cardiovascular disorder
     Dosage: UNK
     Route: 048
     Dates: start: 2007, end: 20100713
  6. SOYFEM [Concomitant]
     Dosage: UNK
     Route: 048
     Dates: start: 20100714
  7. CARBAMAZEPINE [Concomitant]
     Active Substance: CARBAMAZEPINE
     Indication: Nervous system disorder
     Dosage: UNK
     Route: 048
     Dates: start: 20071201, end: 20100713
  8. CARBAMAZEPINE [Concomitant]
     Active Substance: CARBAMAZEPINE
     Dosage: UNK
     Route: 048
     Dates: start: 20100714
  9. CLEMASTINE [Concomitant]
     Active Substance: CLEMASTINE
     Dosage: UNK
     Route: 048
     Dates: start: 20091027, end: 20091103
  10. CLEMASTINE [Concomitant]
     Active Substance: CLEMASTINE
     Dosage: UNK
     Route: 048
     Dates: start: 20091110, end: 20091110
  11. CLEMASTINE [Concomitant]
     Active Substance: CLEMASTINE
     Dosage: UNK
     Route: 048
     Dates: start: 20091117, end: 20091117
  12. CLEMASTINE [Concomitant]
     Active Substance: CLEMASTINE
     Dosage: UNK
     Route: 048
     Dates: start: 20091124, end: 20091124
  13. CLEMASTINE [Concomitant]
     Active Substance: CLEMASTINE
     Dosage: UNK
     Route: 048
     Dates: start: 20091201, end: 20091201
  14. CLEMASTINE [Concomitant]
     Active Substance: CLEMASTINE
     Dosage: UNK
     Route: 048
     Dates: start: 20091215, end: 20091215
  15. CLEMASTINE [Concomitant]
     Active Substance: CLEMASTINE
     Dosage: UNK
     Route: 048
     Dates: start: 20091222, end: 20091222
  16. CLEMASTINE [Concomitant]
     Active Substance: CLEMASTINE
     Dosage: UNK
     Route: 048
     Dates: start: 20100105, end: 20100105
  17. CLEMASTINE [Concomitant]
     Active Substance: CLEMASTINE
     Dosage: UNK
     Route: 048
     Dates: start: 20100112, end: 20100112
  18. CLEMASTINE [Concomitant]
     Active Substance: CLEMASTINE
     Dosage: UNK
     Route: 048
     Dates: start: 20100119, end: 20100119
  19. CLEMASTINE [Concomitant]
     Active Substance: CLEMASTINE
     Dosage: UNK
     Route: 048
     Dates: start: 20100126, end: 20100126
  20. CLEMASTINE [Concomitant]
     Active Substance: CLEMASTINE
     Dosage: UNK
     Route: 048
     Dates: start: 20100202, end: 20100202
  21. CLEMASTINE [Concomitant]
     Active Substance: CLEMASTINE
     Dosage: UNK
     Route: 048
     Dates: start: 20100210, end: 20100210
  22. CLEMASTINE [Concomitant]
     Active Substance: CLEMASTINE
     Dosage: UNK
     Route: 048
     Dates: start: 20100216, end: 20100216
  23. CLEMASTINE [Concomitant]
     Active Substance: CLEMASTINE
     Dosage: UNK
     Route: 048
     Dates: start: 20100223, end: 20100223
  24. CLEMASTINE [Concomitant]
     Active Substance: CLEMASTINE
     Dosage: UNK
     Route: 048
     Dates: start: 20100302, end: 20100302
  25. CLEMASTINE [Concomitant]
     Active Substance: CLEMASTINE
     Dosage: UNK
     Route: 048
     Dates: start: 20100309, end: 20100309
  26. CLEMASTINE [Concomitant]
     Active Substance: CLEMASTINE
     Dosage: UNK
     Route: 048
     Dates: start: 20100316, end: 20100316
  27. CLEMASTINE [Concomitant]
     Active Substance: CLEMASTINE
     Dosage: UNK
     Route: 048
     Dates: start: 20100323, end: 20100323
  28. CLEMASTINE [Concomitant]
     Active Substance: CLEMASTINE
     Dosage: UNK
     Route: 048
     Dates: start: 20100330, end: 20100330
  29. CLEMASTINE [Concomitant]
     Active Substance: CLEMASTINE
     Dosage: UNK
     Route: 048
     Dates: start: 20100406, end: 20100406
  30. CLEMASTINE [Concomitant]
     Active Substance: CLEMASTINE
     Dosage: UNK
     Route: 048
     Dates: start: 20100420, end: 20100420
  31. CLEMASTINE [Concomitant]
     Active Substance: CLEMASTINE
     Dosage: UNK
     Route: 048
     Dates: start: 20100428, end: 20100428
  32. CLEMASTINE [Concomitant]
     Active Substance: CLEMASTINE
     Dosage: UNK
     Route: 048
     Dates: start: 20100504, end: 20100504
  33. CLEMASTINE [Concomitant]
     Active Substance: CLEMASTINE
     Dosage: UNK
     Route: 048
     Dates: start: 20100511, end: 20100511
  34. CLEMASTINE [Concomitant]
     Active Substance: CLEMASTINE
     Dosage: UNK
     Route: 048
     Dates: start: 20100518, end: 20100518
  35. CLEMASTINE [Concomitant]
     Active Substance: CLEMASTINE
     Dosage: UNK
     Route: 048
     Dates: start: 20100525, end: 20100525
  36. CLEMASTINE [Concomitant]
     Active Substance: CLEMASTINE
     Dosage: UNK
     Route: 048
     Dates: start: 20100601, end: 20100601
  37. CLEMASTINE [Concomitant]
     Active Substance: CLEMASTINE
     Dosage: UNK
     Route: 048
     Dates: start: 20100608, end: 20100608
  38. CLEMASTINE [Concomitant]
     Active Substance: CLEMASTINE
     Dosage: UNK
     Route: 048
     Dates: start: 20100615, end: 20100615
  39. CLEMASTINE [Concomitant]
     Active Substance: CLEMASTINE
     Dosage: UNK
     Route: 048
     Dates: start: 20100622, end: 20100622
  40. CLEMASTINE [Concomitant]
     Active Substance: CLEMASTINE
     Dosage: UNK
     Route: 048
     Dates: start: 20100629, end: 20100629
  41. CLEMASTINE [Concomitant]
     Active Substance: CLEMASTINE
     Dosage: UNK
     Route: 048
     Dates: start: 20100706, end: 20100713
  42. HYDROCORTISONE [Concomitant]
     Active Substance: HYDROCORTISONE
     Dosage: UNK
     Dates: start: 20091117, end: 20091117
  43. ACETAMINOPHEN [Concomitant]
     Active Substance: ACETAMINOPHEN
     Indication: Pain
     Dosage: UNK
     Dates: start: 20091117, end: 20091117
  44. ACETAMINOPHEN [Concomitant]
     Active Substance: ACETAMINOPHEN
     Dosage: UNK
     Dates: start: 20091201, end: 20091201
  45. DIAZEPAM [Concomitant]
     Active Substance: DIAZEPAM
     Indication: Nervous system disorder
     Dosage: UNK
     Route: 054
     Dates: start: 20100304, end: 20100304
  46. DIAZEPAM [Concomitant]
     Active Substance: DIAZEPAM
     Dosage: UNK
     Route: 054
     Dates: start: 20100705, end: 20100705
  47. DIAZEPAM [Concomitant]
     Active Substance: DIAZEPAM
     Dosage: UNK
     Route: 054
     Dates: start: 20100714
  48. VALPROIC ACID [Concomitant]
     Active Substance: VALPROIC ACID
     Indication: Nervous system disorder
     Dosage: UNK
     Route: 048
     Dates: start: 201004, end: 201008
  49. VALPROIC ACID [Concomitant]
     Active Substance: VALPROIC ACID
     Dosage: UNK
     Route: 048
     Dates: start: 20100714, end: 20100720
  50. VALPROIC ACID [Concomitant]
     Active Substance: VALPROIC ACID
     Dosage: UNK
     Route: 048
     Dates: start: 20100721, end: 201008
  51. LEVETIRACETAMUM [Concomitant]
     Indication: Nervous system disorder
     Dosage: UNK
     Route: 048
     Dates: start: 201008
  52. CEFUROXIME [Concomitant]
     Active Substance: CEFUROXIME
     Indication: Infection
     Dosage: UNK
     Dates: start: 20110426, end: 20110503
  53. SODIUM CHLORIDE [Concomitant]
     Active Substance: SODIUM CHLORIDE
     Indication: Conjunctivitis
     Dosage: UNK
     Dates: start: 201210, end: 201210
  54. SODIUM CHLORIDE [Concomitant]
     Active Substance: SODIUM CHLORIDE
     Indication: Abscess
  55. ALANTAN [Concomitant]
     Indication: Abscess
     Dosage: UNK
     Route: 062
     Dates: start: 201210, end: 201210
  56. IBUPROFEN [Concomitant]
     Active Substance: IBUPROFEN
     Indication: Pain
     Dosage: UNK
     Route: 048
     Dates: start: 201210, end: 201210
  57. AUGMENTIN [Concomitant]
     Active Substance: AMOXICILLIN\CLAVULANATE POTASSIUM
     Indication: Infection
     Dosage: UNK
     Route: 048
     Dates: start: 20121008, end: 20121018
  58. CEFUROXIME SODIUM [Concomitant]
     Active Substance: CEFUROXIME SODIUM
     Indication: Infection
     Dosage: UNK
     Route: 042
     Dates: start: 20121008, end: 20121018
  59. METRONIDAZOLE [Concomitant]
     Active Substance: METRONIDAZOLE
     Indication: Infection
     Dosage: UNK
     Route: 042
     Dates: start: 20121008, end: 20121018
  60. NEOMYCIN [Concomitant]
     Active Substance: NEOMYCIN
     Indication: Infection
     Dosage: UNK
     Route: 061
     Dates: start: 20121008, end: 201210
  61. FLOXAL [Concomitant]
     Active Substance: OFLOXACIN
     Indication: Infection
     Dosage: UNK
     Route: 062
     Dates: start: 20121008, end: 20121018
  62. VANCOMYCIN [Concomitant]
     Active Substance: VANCOMYCIN
     Indication: Infection
     Dosage: UNK
     Route: 042
     Dates: start: 20121008, end: 201210

REACTIONS (1)
  - Epilepsy [Recovered/Resolved]

NARRATIVE: CASE EVENT DATE: 20100321
